FAERS Safety Report 5364636-6 (Version None)
Quarter: 2007Q2

REPORT INFORMATION
  Report Type: 
  Country: None (occurrence: None)
  Receive Date: 20070607
  Receipt Date: 20061027
  Transmission Date: 20071010
  Serious: Yes (Other)
  Sender: FDA-Public Use
  Company Number: 31691

PATIENT
  Age: 66 Year
  Sex: Female
  Weight: 69 kg

DRUGS (7)
  1. DIPYRIDAMOLE [Suspect]
     Indication: CHEST PAIN
     Dosage: 40MG/IV/X1
     Route: 042
     Dates: start: 20061027
  2. LASIX [Concomitant]
  3. NEXIUM [Concomitant]
  4. XANAX [Concomitant]
  5. CYMBALTA [Concomitant]
  6. VERAPAMIL [Concomitant]
  7. DURAGESIC-100 [Concomitant]

REACTIONS (1)
  - INJECTION SITE REACTION [None]
